FAERS Safety Report 5687432-9 (Version None)
Quarter: 2008Q1

REPORT INFORMATION
  Report Type: 
  Country: None (occurrence: None)
  Receive Date: 20080328
  Receipt Date: 20070906
  Transmission Date: 20080703
  Serious: Yes (Hospitalization)
  Sender: FDA-Public Use
  Company Number: US-BAYER-US-2007-015126

PATIENT
  Age: 42 Year
  Sex: Female
  Weight: 50 kg

DRUGS (1)
  1. MIRENA [Suspect]
     Indication: CONTRACEPTION
     Route: 015
     Dates: start: 20070427

REACTIONS (6)
  - CHILLS [None]
  - HEADACHE [None]
  - MUSCLE SPASMS [None]
  - PAIN [None]
  - PROCEDURAL PAIN [None]
  - PYREXIA [None]
